FAERS Safety Report 4666611-3 (Version None)
Quarter: 2005Q2

REPORT INFORMATION
  Report Type: 
  Country: None (occurrence: None)
  Receive Date: 20050518
  Receipt Date: 20050504
  Transmission Date: 20051028
  Serious: Yes (Death)
  Sender: FDA-Public Use
  Company Number: MK200502-0112-2

PATIENT
  Age: 37 Year
  Sex: Male

DRUGS (5)
  1. METHADOSE [Suspect]
     Indication: DRUG WITHDRAWAL MAINTENANCE THERAPY
     Dosage: 130 MG, Q DAY, PO
     Route: 048
  2. COCAINE [Suspect]
     Dosage: SNIFFING
  3. FLUOXETINE [Concomitant]
  4. TRAZODONE [Concomitant]
  5. OLANZAPINE [Concomitant]

REACTIONS (8)
  - AGITATION [None]
  - ANOXIC ENCEPHALOPATHY [None]
  - CARDIAC ARREST [None]
  - DRUG LEVEL ABOVE THERAPEUTIC [None]
  - DRUG WITHDRAWAL SYNDROME [None]
  - NEUROLOGICAL SYMPTOM [None]
  - PNEUMONIA [None]
  - SINUS BRADYCARDIA [None]
